FAERS Safety Report 22013297 (Version 2)
Quarter: 2023Q2

REPORT INFORMATION
  Report Type: Spontaneous
  Country: MX (occurrence: MX)
  Receive Date: 20230220
  Receipt Date: 20230404
  Transmission Date: 20230721
  Serious: Yes (Death, Life-Threatening, Hospitalization)
  Sender: FDA-Public Use
  Company Number: MX-BAUSCH-BL-2023-002569

PATIENT
  Age: 53 Year
  Sex: Female

DRUGS (2)
  1. PYRIDOSTIGMINE [Suspect]
     Active Substance: PYRIDOSTIGMINE
     Indication: Myasthenia gravis
     Route: 065
  2. PREDNISONE [Concomitant]
     Active Substance: PREDNISONE
     Indication: Myasthenia gravis

REACTIONS (3)
  - Acute myocardial infarction [Fatal]
  - Cardiogenic shock [Fatal]
  - Arteriospasm coronary [Not Recovered/Not Resolved]
